FAERS Safety Report 8930519 (Version 2)
Quarter: 2012Q4

REPORT INFORMATION
  Report Type: 
  Country: US (occurrence: US)
  Receive Date: 20121128
  Receipt Date: 20121130
  Transmission Date: 20130627
  Serious: Yes (Hospitalization)
  Sender: FDA-Public Use
  Company Number: PHEH2012US023144

PATIENT
  Sex: Female

DRUGS (1)
  1. GILENYA [Suspect]
     Indication: MULTIPLE SCLEROSIS
     Dosage: 0.5 mg, QD
     Route: 048
     Dates: start: 201209, end: 201210

REACTIONS (1)
  - Multiple sclerosis relapse [Unknown]
